FAERS Safety Report 4352452-3 (Version None)
Quarter: 2004Q2

REPORT INFORMATION
  Report Type: 
  Country: None (occurrence: None)
  Receive Date: 20040409
  Receipt Date: 20040210
  Transmission Date: 20050107
  Serious: No
  Sender: FDA-Public Use
  Company Number: PHEH2004US01836

PATIENT
  Age: 40 Year
  Sex: Male

DRUGS (9)
  1. ELIDEL [Suspect]
     Indication: ECZEMA
     Dosage: TOPICAL
     Route: 061
  2. COZAAR [Concomitant]
  3. SINGULAIR ^MSD^ (MONTELKAST SODIUM) [Concomitant]
  4. COMBIVENT [Concomitant]
  5. FLOVENT [Concomitant]
  6. SEREVENT [Concomitant]
  7. KLONOPIN [Concomitant]
  8. PROVIGIL [Concomitant]
  9. VISTARIL [Concomitant]

REACTIONS (2)
  - FEELING HOT [None]
  - SKIN PAPILLOMA [None]
